FAERS Safety Report 9033552 (Version 2)
Quarter: 2013Q1

REPORT INFORMATION
  Report Type: Spontaneous
  Country: JP (occurrence: JP)
  Receive Date: 20130128
  Receipt Date: 20130315
  Transmission Date: 20140127
  Serious: Yes (Other)
  Sender: FDA-Public Use
  Company Number: JP-ROCHE-GNE296172

PATIENT
  Age: 47 Year
  Sex: Female
  Weight: 79.09 kg

DRUGS (9)
  1. XOLAIR [Suspect]
     Indication: ASTHMA
     Dosage: 300 MG, QOW
     Route: 058
     Dates: start: 20091021, end: 20091021
  2. ADVAIR [Concomitant]
     Indication: PRODUCT USED FOR UNKNOWN INDICATION
     Route: 065
     Dates: start: 20090216
  3. SINGULAIR [Concomitant]
     Indication: PRODUCT USED FOR UNKNOWN INDICATION
     Route: 065
     Dates: start: 20081006
  4. THEO-DUR [Concomitant]
     Indication: PRODUCT USED FOR UNKNOWN INDICATION
     Route: 065
     Dates: start: 20090902, end: 20091102
  5. ALLEGRA [Concomitant]
     Indication: PRODUCT USED FOR UNKNOWN INDICATION
     Route: 065
     Dates: start: 20090421
  6. OMEPRAL [Concomitant]
     Indication: PRODUCT USED FOR UNKNOWN INDICATION
     Route: 065
     Dates: start: 20090421
  7. VITAMEDIN [Concomitant]
     Indication: PRODUCT USED FOR UNKNOWN INDICATION
     Dosage: UNK
     Route: 065
     Dates: start: 20090421
  8. FOLIC ACID [Concomitant]
     Indication: PRODUCT USED FOR UNKNOWN INDICATION
     Dosage: UNK
     Route: 065
     Dates: start: 20090421
  9. CINAL [Concomitant]
     Indication: PRODUCT USED FOR UNKNOWN INDICATION
     Dosage: UNK
     Route: 065
     Dates: start: 20090421

REACTIONS (14)
  - Anaphylactic reaction [Recovering/Resolving]
  - Photophobia [Unknown]
  - Cold sweat [Unknown]
  - Vomiting [Unknown]
  - Erythema [Unknown]
  - Swelling [Unknown]
  - Headache [Unknown]
  - Gastrointestinal disorder [Unknown]
  - Swelling face [Unknown]
  - Dyspnoea [Unknown]
  - Blood pressure decreased [Unknown]
  - Cough [Unknown]
  - Human anti-human antibody test [Unknown]
  - Rash [Unknown]
